FAERS Safety Report 9866794 (Version 2)
Quarter: 2014Q1

REPORT INFORMATION
  Report Type: Spontaneous
  Country: ES (occurrence: ES)
  Receive Date: 20140204
  Receipt Date: 20140317
  Transmission Date: 20141002
  Serious: Yes (Hospitalization, Other)
  Sender: FDA-Public Use
  Company Number: ES-MERCK-1401ESP013406

PATIENT
  Age: 65 Year
  Sex: Female

DRUGS (3)
  1. FOSAMAX SEMANAL 70 MG [Suspect]
     Indication: OSTEOPOROSIS
     Dosage: 70 MG WEEKLY
     Route: 048
     Dates: start: 2008, end: 201401
  2. PANTOP [Concomitant]
     Dosage: 40 MG DAILY
     Route: 048
     Dates: start: 2008
  3. IDEOS [Concomitant]
     Route: 048

REACTIONS (9)
  - Infection [Recovered/Resolved]
  - Cataract operation [Recovered/Resolved]
  - Herpes zoster [Recovered/Resolved]
  - Intraocular pressure increased [Recovered/Resolved]
  - Essential thrombocythaemia [Not Recovered/Not Resolved]
  - Red blood cell count increased [Not Recovered/Not Resolved]
  - Gastroenteritis viral [Recovered/Resolved]
  - Bursitis [Not Recovered/Not Resolved]
  - Therapeutic procedure [Unknown]
